FAERS Safety Report 9465902 (Version 1)
Quarter: 2013Q3

REPORT INFORMATION
  Report Type: Report from Study
  Country: GB (occurrence: GB)
  Receive Date: 20130820
  Receipt Date: 20130820
  Transmission Date: 20140515
  Serious: Yes (Hospitalization)
  Sender: FDA-Public Use
  Company Number: GB-ASTELLAS-2013EU006917

PATIENT
  Age: 74 Year
  Sex: Male

DRUGS (17)
  1. PLACEBO [Suspect]
     Indication: PROSTATE CANCER
     Dosage: 160 MG, UID/QD
     Route: 048
     Dates: start: 20101115, end: 20120109
  2. ENZALUTAMIDE [Suspect]
     Indication: PROSTATE CANCER
     Dosage: 160 MG, UID/QD
     Route: 048
     Dates: start: 20120911
  3. SYMBICORT [Concomitant]
     Indication: EMPHYSEMA
     Dosage: 2 UNK, BID
     Route: 048
     Dates: start: 201212
  4. ASPIRIN [Concomitant]
     Indication: CARDIOVASCULAR EVENT PROPHYLAXIS
     Dosage: 75 MG, UID/QD
     Route: 048
     Dates: start: 2004
  5. SALBUTAMOL [Concomitant]
     Indication: WHEEZING
     Dosage: 500 UG, PRN
     Route: 055
     Dates: start: 20101217
  6. ADCAL D3 [Concomitant]
     Indication: OSTEOPOROSIS
     Dosage: 1 DF, BID
     Route: 048
     Dates: start: 20110525
  7. ALENDRONATE [Concomitant]
     Indication: OSTEOPOROSIS
     Dosage: 70 MG, WEEKLY
     Route: 048
     Dates: start: 20110525
  8. BECOTIDE [Concomitant]
     Indication: EMPHYSEMA
     Dosage: 2 DF, BID
     Route: 055
     Dates: start: 201101
  9. DISODIUM PAMIDRONT [Concomitant]
     Indication: OSTEOPOROSIS
     Dosage: 90 MG, MONTHLY
     Route: 042
     Dates: start: 20120501
  10. TIOTROPIUM [Concomitant]
     Indication: EMPHYSEMA
     Dosage: 18 UG, UID/QD
     Route: 048
     Dates: start: 201212
  11. SINEMET [Concomitant]
     Indication: PARKINSONISM
     Dosage: 1 DF, TID
     Route: 048
     Dates: start: 20130104, end: 20130708
  12. FELODIPINE [Concomitant]
     Indication: HYPERTENSION
     Dosage: 5 MG, UID/QD
     Route: 048
     Dates: start: 20130122
  13. ATORVASTATIN [Concomitant]
     Indication: BLOOD CHOLESTEROL INCREASED
     Dosage: 40 UG, UID/QD
     Route: 048
     Dates: start: 20130121
  14. TAMSULOSIN [Concomitant]
     Indication: POLLAKIURIA
     Dosage: 400 UG, UID/QD
     Route: 048
     Dates: start: 20130318
  15. PARACETAMOL [Concomitant]
     Indication: ANALGESIC INTERVENTION SUPPORTIVE THERAPY
     Dosage: 500 MG, PRN
     Route: 048
     Dates: start: 201009
  16. ZOLADEX                            /00732101/ [Concomitant]
     Indication: PROSTATE CANCER
     Dosage: 10.8 MG, OTHER
     Route: 058
     Dates: start: 200910
  17. DOCUSATE SODIUM [Concomitant]
     Indication: CONSTIPATION PROPHYLAXIS
     Dosage: 200 MG, PRN
     Route: 048
     Dates: start: 201212

REACTIONS (1)
  - Respite care [Not Recovered/Not Resolved]
